FAERS Safety Report 5472604-9 (Version None)
Quarter: 2007Q4

REPORT INFORMATION
  Report Type: 
  Country: None (occurrence: None)
  Receive Date: 20071001
  Receipt Date: 20060901
  Transmission Date: 20080405
  Serious: No
  Sender: FDA-Public Use
  Company Number: US-ASTRAZENECA-2005UW10000

PATIENT
  Age: 78 Year
  Sex: Female

DRUGS (3)
  1. ARIMIDEX [Suspect]
     Indication: BREAST CANCER FEMALE
     Route: 048
     Dates: start: 20020101
  2. ANTIHYPERTENSIVES [Concomitant]
     Indication: HYPERTENSION
  3. HYZAAR [Concomitant]

REACTIONS (4)
  - FEELING HOT [None]
  - MOOD ALTERED [None]
  - ONYCHOCLASIS [None]
  - WEIGHT INCREASED [None]
